FAERS Safety Report 8609101-5 (Version None)
Quarter: 2012Q3

REPORT INFORMATION
  Report Type: 
  Country: None (occurrence: None)
  Receive Date: 20120821
  Receipt Date: 20120810
  Transmission Date: 20120928
  Serious: Yes (Other)
  Sender: FDA-Public Use
  Company Number: US-ELI_LILLY_AND_COMPANY-US201208003824

PATIENT
  Sex: Male

DRUGS (2)
  1. STRATTERA [Suspect]
     Dosage: 35 MG, UNK
  2. STRATTERA [Suspect]
     Indication: ATTENTION DEFICIT/HYPERACTIVITY DISORDER
     Dosage: 25 MG, UNK

REACTIONS (5)
  - BIPOLAR DISORDER [None]
  - DRUG INEFFECTIVE [None]
  - NEGATIVE THOUGHTS [None]
  - SUICIDAL IDEATION [None]
  - SELF INJURIOUS BEHAVIOUR [None]
